FAERS Safety Report 23606646 (Version 3)
Quarter: 2024Q1

REPORT INFORMATION
  Report Type: Spontaneous
  Country: NL (occurrence: NL)
  Receive Date: 20240307
  Receipt Date: 20240321
  Transmission Date: 20240410
  Serious: Yes (Hospitalization)
  Sender: FDA-Public Use
  Company Number: NL-UNITED THERAPEUTICS-UNT-2024-005651

PATIENT

DRUGS (6)
  1. REMODULIN [Suspect]
     Active Substance: TREPROSTINIL
     Indication: Pulmonary arterial hypertension
     Dosage: UNK (AT FLOW RATE 1.29 ML/DAY), CONTINUING
     Route: 041
  2. REMODULIN [Suspect]
     Active Substance: TREPROSTINIL
     Dosage: 0.058-0.060 ?G/KG, CONTINUING
     Route: 041
     Dates: start: 202402
  3. REMODULIN [Suspect]
     Active Substance: TREPROSTINIL
     Dosage: 0.0622 ?G/KG (AT FLOW RATE 1.42 ML/DAY), CONTINUING
     Route: 041
     Dates: start: 20240220
  4. REMODULIN [Suspect]
     Active Substance: TREPROSTINIL
     Dosage: 0.0439 ?G/KG, (AT FLOW RATE 0.096 ML/24 HOURS), CONTINUING
     Route: 041
     Dates: start: 202402
  5. REMODULIN [Suspect]
     Active Substance: TREPROSTINIL
     Dosage: 0.0602 ?G/KG,(AT FLOW RATE 1.32 ML/DAY) CONTINUING
     Route: 041
     Dates: start: 202403
  6. REMODULIN [Suspect]
     Active Substance: TREPROSTINIL
     Dosage: UNK, CONTINUING
     Route: 041
     Dates: start: 2013

REACTIONS (7)
  - Dyspnoea exertional [Unknown]
  - Oxygen saturation decreased [Unknown]
  - Decreased gait velocity [Unknown]
  - Device delivery system issue [Unknown]
  - Device dislocation [Unknown]
  - Device kink [Unknown]
  - Fatigue [Not Recovered/Not Resolved]

NARRATIVE: CASE EVENT DATE: 20240201
